FAERS Safety Report 7557799-5 (Version None)
Quarter: 2011Q2

REPORT INFORMATION
  Report Type: 
  Country: None (occurrence: None)
  Receive Date: 20110620
  Receipt Date: 20110613
  Transmission Date: 20111010
  Serious: Yes (Life-Threatening, Other)
  Sender: FDA-Public Use
  Company Number: JP-BRISTOL-MYERS SQUIBB COMPANY-15830714

PATIENT

DRUGS (2)
  1. TAXOL [Suspect]
     Indication: NEOPLASM MALIGNANT
     Route: 041
     Dates: start: 20100401
  2. PARAPLATIN [Suspect]
     Indication: NEOPLASM MALIGNANT
     Route: 041
     Dates: start: 20100401

REACTIONS (3)
  - RESPIRATORY ARREST [None]
  - POLYMYOSITIS [None]
  - DYSPHAGIA [None]
